FAERS Safety Report 5834340-6 (Version None)
Quarter: 2008Q3

REPORT INFORMATION
  Report Type: 
  Country: None (occurrence: None)
  Receive Date: 20080805
  Receipt Date: 20080723
  Transmission Date: 20090109
  Serious: Yes (Hospitalization)
  Sender: FDA-Public Use
  Company Number: PHHO1999CA06928

PATIENT
  Sex: Male
  Weight: 73.4 kg

DRUGS (2)
  1. RAD 666 RAD+ [Suspect]
     Dosage: 1.5 MG, BID
     Route: 048
     Dates: start: 19990609, end: 19990905
  2. NEORAL [Suspect]
     Dates: end: 19990905

REACTIONS (4)
  - CHEST PAIN [None]
  - HAEMOLYTIC URAEMIC SYNDROME [None]
  - PYREXIA [None]
  - THROMBOCYTOPENIA [None]
